FAERS Safety Report 16213746 (Version 1)
Quarter: 2019Q2

REPORT INFORMATION
  Report Type: Spontaneous
  Country: CZ (occurrence: CZ)
  Receive Date: 20190418
  Receipt Date: 20190418
  Transmission Date: 20190711
  Serious: Yes (Hospitalization, Other)
  Sender: FDA-Public Use
  Company Number: CZ-JNJFOC-20160623280

PATIENT

DRUGS (1)
  1. INFLIXIMAB, RECOMBINANT [Suspect]
     Active Substance: INFLIXIMAB
     Indication: INFLAMMATORY BOWEL DISEASE
     Dosage: MOTHER^S DOSING
     Route: 015

REACTIONS (25)
  - Urinary tract infection [Unknown]
  - Bronchitis [Unknown]
  - Immunoglobulins decreased [Unknown]
  - Infection [Unknown]
  - Neonatal disorder [Unknown]
  - Haemangioma of skin [Unknown]
  - Seasonal allergy [Unknown]
  - Autism spectrum disorder [Unknown]
  - Renal hypoplasia [Unknown]
  - Low birth weight baby [Unknown]
  - Foetal exposure during pregnancy [Recovered/Resolved]
  - Upper respiratory tract infection [Unknown]
  - Otitis media [Unknown]
  - Eye disorder [Unknown]
  - Contraindication to vaccination [Unknown]
  - Dermatitis atopic [Unknown]
  - Premature baby [Unknown]
  - Vesicoureteric reflux [Unknown]
  - Hypersensitivity [Unknown]
  - Pyelonephritis [Unknown]
  - Cleft palate [Unknown]
  - Gastrointestinal infection [Unknown]
  - Haemangioma of liver [Unknown]
  - Ventricular septal defect [Unknown]
  - Foot deformity [Unknown]
